FAERS Safety Report 6095166-4 (Version None)
Quarter: 2009Q1

REPORT INFORMATION
  Report Type: 
  Country: None (occurrence: None)
  Receive Date: 20090227
  Receipt Date: 20080204
  Transmission Date: 20090719
  Serious: No
  Sender: FDA-Public Use
  Company Number: A0707159A

PATIENT
  Age: 51 Year
  Sex: Female

DRUGS (5)
  1. LAMICTAL [Suspect]
     Indication: EPILEPSY
     Dosage: 300MG PER DAY
     Route: 048
  2. LEXAPRO [Concomitant]
  3. PROTONIX [Concomitant]
  4. VYVANSE [Concomitant]
  5. CYMBALTA [Concomitant]

REACTIONS (2)
  - BLISTER [None]
  - RASH [None]
